FAERS Safety Report 8155962-6 (Version None)
Quarter: 2012Q1

REPORT INFORMATION
  Report Type: 
  Country: None (occurrence: None)
  Receive Date: 20120221
  Receipt Date: 20120221
  Transmission Date: 20120608
  Serious: Yes (Life-Threatening, Hospitalization, Disabling, Other)
  Sender: FDA-Public Use
  Company Number: None

PATIENT
  Sex: Female
  Weight: 99.7913 kg

DRUGS (1)
  1. MIRENA [Suspect]

REACTIONS (8)
  - INFERTILITY [None]
  - MEDICAL DEVICE COMPLICATION [None]
  - PAIN [None]
  - HAEMORRHAGE [None]
  - INFECTIOUS PERITONITIS [None]
  - UTERINE PERFORATION [None]
  - HEPATIC ADENOMA [None]
  - UTERINE MASS [None]
